FAERS Safety Report 6696422-9 (Version None)
Quarter: 2010Q2

REPORT INFORMATION
  Report Type: 
  Country: None (occurrence: None)
  Receive Date: 20100426
  Receipt Date: 20100414
  Transmission Date: 20101027
  Serious: Yes (Death)
  Sender: FDA-Public Use
  Company Number: US-ROCHE-695262

PATIENT
  Sex: Female

DRUGS (11)
  1. BEVACIZUMAB [Suspect]
     Indication: OVARIAN CANCER
     Route: 042
     Dates: start: 20090122, end: 20090507
  2. ERLOTINIB [Suspect]
     Indication: OVARIAN CANCER
     Route: 048
     Dates: start: 20090528, end: 20100322
  3. CARBOPLATIN [Suspect]
     Indication: OVARIAN CANCER
     Route: 065
     Dates: start: 20090122, end: 20090507
  4. ARIXTRA [Concomitant]
     Dosage: 2.5 MG.0.5 DISP SYRN ML, FREQUENCY: QD, NUMBER 30 PREFILLED SYRINGE(S), FORM: PRE-FILLED SYRINGE
     Route: 058
  5. CLINDAMYCIN [Concomitant]
     Dosage: CLINDAMYCIN 1 % GEL 1 APPLICATION TOP BID, APPLY THIN FILM. #45GM
     Route: 061
  6. FLUOCINONIDE [Concomitant]
     Dosage: FLUOCIONNIDE 0.05% CREAM, 1 APPLICATION TOP BID # 1 LARGE TUBE
     Route: 061
  7. FLUOXETINE HCL [Concomitant]
     Dosage: FLUOXETINE HCL 20 MG(20 MG TABLET TAKE 1) PO QD # 30 TABLETS
     Route: 048
  8. LISINOPRIL [Concomitant]
     Dosage: LISINOPRIL 5 MG (5 MG TABLET TAKE 1) PO QD # 30 TABLETS
     Route: 048
  9. MULTIVITAMIN NOS [Concomitant]
     Route: 048
  10. NORVASC [Concomitant]
     Dosage: NORVASC 10 MG (10 MG TABLET TAKE 1) PO QD # 30 TABLETS
     Route: 048
  11. VITAMIN D2 [Concomitant]
     Dosage: 1000 UNITS (400 UNITS TAKE 2.5)
     Route: 048

REACTIONS (1)
  - CARDIAC ARREST [None]
